FAERS Safety Report 19267685 (Version 1)
Quarter: 2021Q2

REPORT INFORMATION
  Report Type: Spontaneous
  Country: CA (occurrence: CA)
  Receive Date: 20210517
  Receipt Date: 20210517
  Transmission Date: 20210717
  Serious: Yes (Hospitalization)
  Sender: FDA-Public Use
  Company Number: CA-SAMSUNG BIOEPIS-SB-2021-11684

PATIENT
  Age: 31 Year
  Sex: Male

DRUGS (1)
  1. INFLIXIMAB [Suspect]
     Active Substance: INFLIXIMAB
     Indication: CROHN^S DISEASE
     Route: 042

REACTIONS (10)
  - Chest pain [Unknown]
  - Infection [Unknown]
  - Blood pressure increased [Unknown]
  - Nasal congestion [Unknown]
  - Flushing [Unknown]
  - Off label use [Unknown]
  - Heart rate increased [Unknown]
  - Inappropriate schedule of product administration [Unknown]
  - Erythema [Unknown]
  - Swelling face [Unknown]
